FAERS Safety Report 8983727 (Version 4)
Quarter: 2014Q3

REPORT INFORMATION
  Report Type: Report from Study
  Country: US (occurrence: US)
  Receive Date: 20121224
  Receipt Date: 20140829
  Transmission Date: 20150326
  Serious: Yes (Hospitalization, Other)
  Sender: FDA-Public Use
  Company Number: US-ASTELLAS-2012US012601

PATIENT
  Sex: Female
  Weight: 56 kg

DRUGS (4)
  1. ANALGESICS [Concomitant]
     Active Substance: UNSPECIFIED INGREDIENT
     Indication: PAIN
     Dosage: UNK, UNKNOWN FREQ.
     Route: 065
  2. PROTONIX [Concomitant]
     Active Substance: PANTOPRAZOLE SODIUM
     Indication: PRODUCT USED FOR UNKNOWN INDICATION
     Dosage: UNK, UNKNOWN FREQ.
     Route: 048
  3. ERLOTINIB [Suspect]
     Active Substance: ERLOTINIB
     Indication: NON-SMALL CELL LUNG CANCER
     Route: 048
     Dates: start: 2005
  4. ERLOTINIB [Suspect]
     Active Substance: ERLOTINIB
     Route: 048
     Dates: start: 20121012

REACTIONS (30)
  - Feeling cold [Not Recovered/Not Resolved]
  - Memory impairment [Unknown]
  - Constipation [Not Recovered/Not Resolved]
  - Balance disorder [Recovering/Resolving]
  - Erythema [Not Recovered/Not Resolved]
  - Hip fracture [Recovered/Resolved]
  - Nausea [Unknown]
  - Feeling of body temperature change [Not Recovered/Not Resolved]
  - Abdominal pain upper [Unknown]
  - Back pain [Not Recovered/Not Resolved]
  - Trichiasis [Not Recovered/Not Resolved]
  - Vomiting [Unknown]
  - Pain in extremity [Not Recovered/Not Resolved]
  - Hip fracture [Recovered/Resolved]
  - Alopecia [Not Recovered/Not Resolved]
  - Lower limb fracture [Unknown]
  - Arthralgia [Not Recovered/Not Resolved]
  - Eyelid retraction [Not Recovered/Not Resolved]
  - Enamel anomaly [Not Recovered/Not Resolved]
  - Cataract operation [Not Recovered/Not Resolved]
  - Diarrhoea [Not Recovered/Not Resolved]
  - Eye infection [Not Recovered/Not Resolved]
  - Rash [Not Recovered/Not Resolved]
  - Malignant neoplasm progression [Unknown]
  - Skin discolouration [Not Recovered/Not Resolved]
  - Skin burning sensation [Not Recovered/Not Resolved]
  - Visual impairment [Not Recovered/Not Resolved]
  - Gastrooesophageal reflux disease [Not Recovered/Not Resolved]
  - Weight decreased [Not Recovered/Not Resolved]
  - Arthralgia [Not Recovered/Not Resolved]

NARRATIVE: CASE EVENT DATE: 2005
